FAERS Safety Report 15554388 (Version 1)
Quarter: 2018Q4

REPORT INFORMATION
  Report Type: Spontaneous
  Country: US (occurrence: US)
  Receive Date: 20181026
  Receipt Date: 20181026
  Transmission Date: 20190205
  Serious: No
  Sender: FDA-Public Use
  Company Number: US-PFIZER INC-2018428457

PATIENT
  Sex: Female

DRUGS (1)
  1. CELEBREX [Suspect]
     Active Substance: CELECOXIB
     Dosage: UNK, TWICE A DAY
     Dates: start: 2007

REACTIONS (3)
  - Peripheral swelling [Unknown]
  - Drug ineffective [Unknown]
  - Pain [Unknown]
